FAERS Safety Report 23280235 (Version 1)
Quarter: 2023Q4

REPORT INFORMATION
  Report Type: Spontaneous
  Country: AU (occurrence: AU)
  Receive Date: 20231210
  Receipt Date: 20231210
  Transmission Date: 20240110
  Serious: Yes (Other)
  Sender: FDA-Public Use
  Company Number: AU-BRISTOL-MYERS SQUIBB COMPANY-2023-172556

PATIENT
  Age: 23 Year
  Sex: Female

DRUGS (10)
  1. AZACITIDINE [Suspect]
     Active Substance: AZACITIDINE
     Indication: Acute myeloid leukaemia refractory
  2. AZACITIDINE [Suspect]
     Active Substance: AZACITIDINE
     Indication: Haemophagocytic lymphohistiocytosis
  3. DEXAMETHASONE [Suspect]
     Active Substance: DEXAMETHASONE
     Indication: Product used for unknown indication
     Dosage: 4MG BID
     Dates: start: 20221201
  4. POSACONAZOLE [Suspect]
     Active Substance: POSACONAZOLE
     Indication: Acute myeloid leukaemia refractory
  5. POSACONAZOLE [Suspect]
     Active Substance: POSACONAZOLE
     Indication: Haemophagocytic lymphohistiocytosis
  6. VENETOCLAX [Suspect]
     Active Substance: VENETOCLAX
     Indication: Acute myeloid leukaemia refractory
     Dates: start: 20230105
  7. VENETOCLAX [Suspect]
     Active Substance: VENETOCLAX
     Indication: Haemophagocytic lymphohistiocytosis
  8. CYCLOSPORINE [Suspect]
     Active Substance: CYCLOSPORINE
     Indication: Product used for unknown indication
     Dosage: 50 MG BD
     Dates: start: 20221201
  9. ETOPOSIDE [Suspect]
     Active Substance: ETOPOSIDE
     Indication: Product used for unknown indication
     Dates: start: 20221201
  10. HUMAN IMMUNOGLOBULIN G [Suspect]
     Active Substance: HUMAN IMMUNOGLOBULIN G
     Indication: Product used for unknown indication
     Dosage: (1G/ KG X 2 DAYS)
     Dates: start: 20221201

REACTIONS (5)
  - Haemophagocytic lymphohistiocytosis [Unknown]
  - Disease progression [Unknown]
  - Pancytopenia [Unknown]
  - Pyrexia [Unknown]
  - Serum ferritin increased [Unknown]
